FAERS Safety Report 9506198 (Version 1)
Quarter: 2013Q1

REPORT INFORMATION
  Report Type: Spontaneous
  Country: US (occurrence: None)
  Receive Date: 20130220
  Receipt Date: 20130220
  Transmission Date: 20140127
  Serious: No
  Sender: FDA-Public Use
  Company Number: 1000040632

PATIENT
  Age: 35 Year
  Sex: Male

DRUGS (1)
  1. VIIBRYD [Suspect]
     Indication: DEPRESSION
     Dosage: 1 IN 1 D, ORAL
     Route: 048
     Dates: start: 2011

REACTIONS (1)
  - Drug ineffective [None]
